FAERS Safety Report 6401474-7 (Version None)
Quarter: 2009Q4

REPORT INFORMATION
  Report Type: 
  Country: None (occurrence: None)
  Receive Date: 20091015
  Receipt Date: 20070307
  Transmission Date: 20100525
  Serious: Yes (Disabling)
  Sender: FDA-Public Use
  Company Number: US-ASTRAZENECA-2006UW08369

PATIENT
  Sex: Male
  Weight: 104.3 kg

DRUGS (4)
  1. SEROQUEL [Suspect]
     Route: 048
     Dates: start: 20040107
  2. ATIVAN [Concomitant]
     Indication: AGITATION
     Dosage: 0.5-2MG
     Route: 048
     Dates: start: 20030423
  3. PROZAC [Concomitant]
     Route: 048
     Dates: start: 20010320
  4. NEXIUM [Concomitant]
     Indication: GASTROOESOPHAGEAL REFLUX DISEASE
     Route: 048
     Dates: start: 20021118

REACTIONS (1)
  - ILL-DEFINED DISORDER [None]
